FAERS Safety Report 8567228-0 (Version None)
Quarter: 2012Q3

REPORT INFORMATION
  Report Type: 
  Country: None (occurrence: None)
  Receive Date: 20120730
  Receipt Date: 20120730
  Transmission Date: 20120928
  Serious: Yes (Other)
  Sender: FDA-Public Use
  Company Number: None

PATIENT
  Age: 48 Year
  Sex: Female
  Weight: 89.8122 kg

DRUGS (2)
  1. BUPROPION HCL [Suspect]
     Indication: ATTENTION DEFICIT/HYPERACTIVITY DISORDER
     Dosage: 300 MG, 1 X DAY, PO
     Route: 048
     Dates: start: 20120718, end: 20120728
  2. BUPROPION HCL [Suspect]
     Indication: DEPRESSION
     Dosage: 300 MG, 1 X DAY, PO
     Route: 048
     Dates: start: 20120718, end: 20120728

REACTIONS (8)
  - BALANCE DISORDER [None]
  - THINKING ABNORMAL [None]
  - IMPAIRED DRIVING ABILITY [None]
  - CONDITION AGGRAVATED [None]
  - DEPRESSION [None]
  - FEELING ABNORMAL [None]
  - PRODUCT SUBSTITUTION ISSUE [None]
  - VOMITING [None]
